FAERS Safety Report 26089874 (Version 1)
Quarter: 2025Q4

REPORT INFORMATION
  Report Type: Spontaneous
  Country: US (occurrence: US)
  Receive Date: 20251125
  Receipt Date: 20251125
  Transmission Date: 20260118
  Serious: Yes (Hospitalization, Other)
  Sender: Steriscience PTE
  Company Number: US-STERISCIENCE B.V.-2024-ST-001976

PATIENT
  Age: 60 Year
  Sex: Female

DRUGS (2)
  1. VANCOMYCIN [Suspect]
     Active Substance: VANCOMYCIN
     Indication: Appendicitis perforated
     Dosage: VIA PERIPHERALLY INSERTED CENTRAL CATHETER LINE
     Route: 065
  2. ZOSYN [Suspect]
     Active Substance: PIPERACILLIN SODIUM\TAZOBACTAM SODIUM
     Indication: Appendicitis perforated
     Dosage: VIA PERIPHERALLY INSERTED CENTRAL CATHETER LINE
     Route: 065

REACTIONS (1)
  - Drug reaction with eosinophilia and systemic symptoms [None]
